FAERS Safety Report 20910422 (Version 1)
Quarter: 2022Q2

REPORT INFORMATION
  Report Type: Report from Study
  Country: SG (occurrence: SG)
  Receive Date: 20220603
  Receipt Date: 20220603
  Transmission Date: 20220720
  Serious: Yes (Hospitalization)
  Sender: FDA-Public Use
  Company Number: SG-shionogi-202205713_S-649266_C_1

PATIENT
  Age: 55 Year
  Sex: Male

DRUGS (5)
  1. CEFIDEROCOL [Suspect]
     Active Substance: CEFIDEROCOL
     Indication: Bacteraemia
     Dosage: 2 GRAMS EVERY 8 HOURS
     Route: 041
     Dates: start: 20220510, end: 20220514
  2. CEFIDEROCOL [Suspect]
     Active Substance: CEFIDEROCOL
     Indication: Escherichia bacteraemia
  3. MEROPENEM [Concomitant]
     Active Substance: MEROPENEM
     Dosage: 1 GRAM Q12H
     Route: 065
     Dates: start: 20220509, end: 20220510
  4. MEROPENEM [Concomitant]
     Active Substance: MEROPENEM
     Dosage: 1 GRAM Q8H
     Route: 065
     Dates: start: 20220517
  5. ERTAPENEM [Concomitant]
     Active Substance: ERTAPENEM
     Dosage: 1 GRAM Q24H
     Route: 065
     Dates: start: 20220514, end: 20220516

REACTIONS (2)
  - Blood bilirubin increased [Unknown]
  - Blood alkaline phosphatase increased [Unknown]

NARRATIVE: CASE EVENT DATE: 20220513
